FAERS Safety Report 11244599 (Version 3)
Quarter: 2015Q3

REPORT INFORMATION
  Report Type: Spontaneous
  Country: US (occurrence: US)
  Receive Date: 20150707
  Receipt Date: 20150923
  Transmission Date: 20151125
  Serious: Yes (Other)
  Sender: FDA-Public Use
  Company Number: US-PFIZER INC-2015222052

PATIENT
  Age: 61 Year
  Sex: Female
  Weight: 110 kg

DRUGS (3)
  1. IBRANCE [Suspect]
     Active Substance: PALBOCICLIB
     Dosage: UNK
  2. IBRANCE [Suspect]
     Active Substance: PALBOCICLIB
     Dosage: UNK
  3. IBRANCE [Suspect]
     Active Substance: PALBOCICLIB
     Indication: BREAST CANCER STAGE IV
     Dosage: 125 MG, DAY 1-21 EVERY 28 DAYS
     Route: 048
     Dates: start: 20150617

REACTIONS (5)
  - Nausea [Recovered/Resolved]
  - Fatigue [Unknown]
  - Intentional product misuse [Unknown]
  - Blood potassium decreased [Unknown]
  - Decreased appetite [Unknown]
